FAERS Safety Report 5222483-X (Version None)
Quarter: 2007Q1

REPORT INFORMATION
  Report Type: 
  Country: None (occurrence: None)
  Receive Date: 20070129
  Receipt Date: 20060811
  Transmission Date: 20070707
  Serious: No
  Sender: FDA-Public Use
  Company Number: US-BRISTOL-MYERS SQUIBB COMPANY-13390018

PATIENT
  Sex: Male

DRUGS (1)
  1. CARDIOLITE [Suspect]
     Dates: start: 20060501

REACTIONS (1)
  - URTICARIA [None]
